FAERS Safety Report 26137486 (Version 1)
Quarter: 2025Q4

REPORT INFORMATION
  Report Type: Report from Study
  Country: AR (occurrence: AR)
  Receive Date: 20251209
  Receipt Date: 20251209
  Transmission Date: 20260118
  Serious: Yes (Hospitalization)
  Sender: BIOGEN
  Company Number: AR-BIOGEN-2093960

PATIENT
  Age: 5 Year
  Sex: Female

DRUGS (2)
  1. SPINRAZA [Suspect]
     Active Substance: NUSINERSEN
     Indication: Spinal muscular atrophy
     Dosage: LAST DOSE: 24JUN2025. THE BATCH NUMBER AND EXPIRATION DATE WERE ASKED BUT UNKNOWN.
     Dates: start: 20220331, end: 20250624
  2. NUSINERSEN [Suspect]
     Active Substance: NUSINERSEN
     Indication: Spinal muscular atrophy

REACTIONS (2)
  - Seizure [Recovered/Resolved]
  - Mental disorder [Unknown]

NARRATIVE: CASE EVENT DATE: 20251114
